FAERS Safety Report 5213988-6 (Version None)
Quarter: 2007Q1

REPORT INFORMATION
  Report Type: 
  Country: None (occurrence: None)
  Receive Date: 20070122
  Receipt Date: 20070112
  Transmission Date: 20070707
  Serious: Yes (Hospitalization)
  Sender: FDA-Public Use
  Company Number: US-JNJFOC-20070103129

PATIENT
  Age: 27 Year
  Sex: Male

DRUGS (1)
  1. FENTANYL TRANSDERMAL SYSTEM [Suspect]
     Indication: INTENTIONAL DRUG MISUSE
     Route: 048

REACTIONS (5)
  - ATRIAL FIBRILLATION [None]
  - HYPOXIA [None]
  - INTENTIONAL DRUG MISUSE [None]
  - SINUS TACHYCARDIA [None]
  - SUPRAVENTRICULAR TACHYCARDIA [None]
